FAERS Safety Report 15793435 (Version 7)
Quarter: 2019Q3

REPORT INFORMATION
  Report Type: Spontaneous
  Country: US (occurrence: US)
  Receive Date: 20190107
  Receipt Date: 20190904
  Transmission Date: 20191004
  Serious: No
  Sender: FDA-Public Use
  Company Number: US-PFIZER INC-2018476569

PATIENT
  Age: 73 Year
  Sex: Male
  Weight: 91 kg

DRUGS (8)
  1. LYRICA [Suspect]
     Active Substance: PREGABALIN
     Dosage: 75 MG, 3X/DAY
     Route: 048
     Dates: start: 20190101
  2. HYDROCODONE [Concomitant]
     Active Substance: HYDROCODONE
     Indication: SLEEP DISORDER
     Dosage: 325 MG, 1X/DAY
     Route: 048
  3. LYRICA [Suspect]
     Active Substance: PREGABALIN
     Indication: HERPES ZOSTER
     Dosage: 100 MG, 3X/DAY
     Dates: start: 2018, end: 2018
  4. HYDROCODONE [Concomitant]
     Active Substance: HYDROCODONE
     Dosage: UNK
     Dates: start: 20190115
  5. LYRICA [Suspect]
     Active Substance: PREGABALIN
     Indication: PAIN
     Dosage: 100 MG, UNK
     Route: 048
     Dates: start: 2018
  6. LYRICA [Suspect]
     Active Substance: PREGABALIN
     Dosage: 75 MG, UNK
     Route: 048
  7. LYRICA [Suspect]
     Active Substance: PREGABALIN
     Indication: NEURALGIA
     Dosage: 100 MG, UNK
     Route: 048
     Dates: start: 201801, end: 2018
  8. LYRICA [Suspect]
     Active Substance: PREGABALIN
     Dosage: 75 MG, 3X/DAY (EVERY 8 HOURS)
     Route: 048

REACTIONS (3)
  - Feeling abnormal [Recovering/Resolving]
  - Mobility decreased [Not Recovered/Not Resolved]
  - Therapeutic product effect incomplete [Unknown]
